FAERS Safety Report 11279727 (Version 1)
Quarter: 2015Q3

REPORT INFORMATION
  Report Type: Report from Study
  Country: CA (occurrence: CA)
  Receive Date: 20150717
  Receipt Date: 20150717
  Transmission Date: 20151125
  Serious: Yes (Death)
  Sender: FDA-Public Use
  Company Number: PHHY2015CA075853

PATIENT
  Age: 75 Year
  Sex: Female

DRUGS (6)
  1. SANDOSTATIN [Suspect]
     Active Substance: OCTREOTIDE ACETATE
     Indication: INTESTINAL FISTULA
  2. SANDOSTATIN [Suspect]
     Active Substance: OCTREOTIDE ACETATE
     Indication: VESICAL FISTULA
     Dosage: 1000 UG, TID (TOCONTINUE 2 WEEKS POST FIRST LAR)
     Route: 058
     Dates: start: 201506
  3. SANDOSTATIN LAR DEPOT [Suspect]
     Active Substance: OCTREOTIDE ACETATE
     Indication: VAGINAL FISTULA
  4. SANDOSTATIN LAR DEPOT [Suspect]
     Active Substance: OCTREOTIDE ACETATE
     Indication: INTESTINAL FISTULA
  5. SANDOSTATIN [Suspect]
     Active Substance: OCTREOTIDE ACETATE
     Indication: VAGINAL FISTULA
  6. SANDOSTATIN LAR DEPOT [Suspect]
     Active Substance: OCTREOTIDE ACETATE
     Indication: VESICAL FISTULA
     Dosage: 20 MG, QMO
     Route: 030
     Dates: start: 20150619

REACTIONS (5)
  - Pain [Unknown]
  - Vomiting [Unknown]
  - Off label use [Unknown]
  - Death [Fatal]
  - Nausea [Unknown]

NARRATIVE: CASE EVENT DATE: 201506
